FAERS Safety Report 5393690-0 (Version None)
Quarter: 2007Q3

REPORT INFORMATION
  Report Type: 
  Country: None (occurrence: None)
  Receive Date: 20070723
  Receipt Date: 20070718
  Transmission Date: 20080115
  Serious: Yes (Hospitalization, Other)
  Sender: FDA-Public Use
  Company Number: US-ELI_LILLY_AND_COMPANY-US_0510123100

PATIENT
  Age: 54 Year
  Sex: Male
  Weight: 63.636 kg

DRUGS (7)
  1. PAXIL [Concomitant]
     Dosage: 40 MG, DAILY (1/D)
  2. PROTONIX [Concomitant]
     Dosage: 40 MG, DAILY (1/D)
     Route: 048
  3. TOPAMAX                                 /AUS/ [Concomitant]
     Dosage: 50 MG, 2/D
  4. ZYPREXA [Suspect]
     Indication: BIPOLAR DISORDER
     Dosage: 2.5 MG, DAILY (1/D)
     Route: 048
     Dates: start: 20020930
  5. ZYPREXA [Suspect]
     Dosage: 5 MG, DAILY (1/D)
     Route: 048
     Dates: start: 20020930, end: 20030911
  6. ATENOLOL [Concomitant]
     Indication: HYPERTENSION
     Dosage: 25 MG, DAILY (1/D)
  7. LISINOPRIL [Concomitant]
     Dosage: 20 MG, UNKNOWN

REACTIONS (13)
  - ANXIETY [None]
  - CHOLECYSTITIS [None]
  - CHOLELITHIASIS [None]
  - CLOSTRIDIUM DIFFICILE COLITIS [None]
  - DEPRESSION [None]
  - DIABETES MELLITUS [None]
  - DIABETIC COMPLICATION [None]
  - DIABETIC NEUROPATHY [None]
  - HEPATIC STEATOSIS [None]
  - PAIN [None]
  - PANCREATIC PSEUDOCYST [None]
  - PANCREATITIS [None]
  - WEIGHT INCREASED [None]
